FAERS Safety Report 5837405-8 (Version None)
Quarter: 2008Q3

REPORT INFORMATION
  Report Type: 
  Country: None (occurrence: None)
  Receive Date: 20080807
  Receipt Date: 20080714
  Transmission Date: 20090109
  Serious: Yes (Death, Hospitalization, Disabling, Other)
  Sender: FDA-Public Use
  Company Number: US-PFIZER INC-2008029982

PATIENT
  Sex: Female
  Weight: 122.5 kg

DRUGS (2)
  1. BEXTRA [Suspect]
     Indication: BACK PAIN
     Route: 048
     Dates: start: 20030603, end: 20040809
  2. BEXTRA [Suspect]
     Indication: OSTEOARTHRITIS

REACTIONS (1)
  - PULMONARY THROMBOSIS [None]
